FAERS Safety Report 7689916-0 (Version None)
Quarter: 2011Q3

REPORT INFORMATION
  Report Type: 
  Country: None (occurrence: None)
  Receive Date: 20110818
  Receipt Date: 20110811
  Transmission Date: 20111222
  Serious: No
  Sender: FDA-Public Use
  Company Number: US-BIOGENIDEC-2011BI028475

PATIENT
  Age: 65 Year
  Sex: Female

DRUGS (1)
  1. TYSABRI [Suspect]
     Indication: MULTIPLE SCLEROSIS
     Route: 042
     Dates: start: 20061026

REACTIONS (7)
  - LOSS OF CONTROL OF LEGS [None]
  - FATIGUE [None]
  - MUSCULAR WEAKNESS [None]
  - INSOMNIA [None]
  - DYSPNOEA EXERTIONAL [None]
  - ARTHRALGIA [None]
  - BACK PAIN [None]
